FAERS Safety Report 12634218 (Version 5)
Quarter: 2016Q4

REPORT INFORMATION
  Report Type: Spontaneous
  Country: GB (occurrence: GB)
  Receive Date: 20160809
  Receipt Date: 20161017
  Transmission Date: 20170207
  Serious: Yes (Other)
  Sender: FDA-Public Use
  Company Number: GB-PFIZER INC-2016373861

PATIENT
  Age: 47 Year
  Sex: Female
  Weight: 58 kg

DRUGS (6)
  1. PARACETAMOL [Concomitant]
     Active Substance: ACETAMINOPHEN
     Indication: HEADACHE
     Dosage: UNK
  2. CETIRIZINE DIHYDROCHLORIDE DERMAPHARM [Interacting]
     Active Substance: CETIRIZINE HYDROCHLORIDE
     Indication: MULTIPLE ALLERGIES
     Dosage: 10 MG, UNK
     Route: 048
     Dates: start: 20160713, end: 20160722
  3. SERTRALINE HCL [Interacting]
     Active Substance: SERTRALINE HYDROCHLORIDE
     Dosage: 100 MG, UNK
     Route: 048
     Dates: start: 2016
  4. SERTRALINE HCL [Interacting]
     Active Substance: SERTRALINE HYDROCHLORIDE
     Dosage: 150 MG, UNK
     Route: 048
     Dates: start: 2016, end: 2016
  5. SERTRALINE HCL [Suspect]
     Active Substance: SERTRALINE HYDROCHLORIDE
     Indication: DEPRESSION
     Dosage: 100 MG, UNK
     Route: 048
     Dates: start: 2016, end: 2016
  6. LORATADINE. [Concomitant]
     Active Substance: LORATADINE
     Dosage: UNK

REACTIONS (6)
  - Abdominal discomfort [Recovered/Resolved]
  - Condition aggravated [Recovered/Resolved]
  - Headache [Unknown]
  - Blood pressure systolic increased [Unknown]
  - Inhibitory drug interaction [Recovered/Resolved]
  - Depression [Recovered/Resolved]

NARRATIVE: CASE EVENT DATE: 2016
